FAERS Safety Report 23315083 (Version 1)
Quarter: 2023Q4

REPORT INFORMATION
  Report Type: Other
  Country: CA (occurrence: CA)
  Receive Date: 20231219
  Receipt Date: 20231219
  Transmission Date: 20240110
  Serious: Yes (Other)
  Sender: FDA-Public Use
  Company Number: CA-BIOCON-BBL2023001360

PATIENT

DRUGS (20)
  1. HULIO [Suspect]
     Active Substance: ADALIMUMAB-FKJP
     Indication: Product used for unknown indication
     Dosage: SOLUTION SUBCUTANEOUS
     Route: 058
  2. ACTEMRA [Suspect]
     Active Substance: TOCILIZUMAB
     Indication: Product used for unknown indication
     Dosage: NOT SPECIFIED
     Route: 065
  3. ALENDRONIC ACID [Suspect]
     Active Substance: ALENDRONIC ACID
     Indication: Product used for unknown indication
     Dosage: TABLET
     Route: 065
  4. PREDNISONE [Suspect]
     Active Substance: PREDNISONE
     Indication: Product used for unknown indication
     Route: 065
  5. CETIRIZINE HYDROCHLORIDE [Suspect]
     Active Substance: CETIRIZINE HYDROCHLORIDE
     Indication: Product used for unknown indication
     Route: 065
  6. CIMZIA [Suspect]
     Active Substance: CERTOLIZUMAB PEGOL
     Indication: Product used for unknown indication
     Dosage: SOLUTION FOR INJECTION
     Route: 058
  7. CORTISONE (HYDROCORTISONE) [Suspect]
     Active Substance: HYDROCORTISONE
     Indication: Product used for unknown indication
     Route: 065
  8. DICLOFENAC DIETHYLAMINE [Suspect]
     Active Substance: DICLOFENAC DIETHYLAMINE
     Indication: Product used for unknown indication
     Route: 065
  9. ERELZI [Suspect]
     Active Substance: ETANERCEPT-SZZS
     Indication: Product used for unknown indication
     Route: 065
  10. FOLIC ACID [Suspect]
     Active Substance: FOLIC ACID
     Indication: Product used for unknown indication
     Route: 065
  11. HYDROXYCHLOROQUINE SULFATE [Suspect]
     Active Substance: HYDROXYCHLOROQUINE SULFATE
     Indication: Product used for unknown indication
     Route: 065
  12. LEFLUNOMIDE [Suspect]
     Active Substance: LEFLUNOMIDE
     Indication: Product used for unknown indication
     Route: 065
  13. METHOTREXATE [Suspect]
     Active Substance: METHOTREXATE
     Indication: Product used for unknown indication
     Route: 065
  14. ORENCIA [Suspect]
     Active Substance: ABATACEPT
     Indication: Product used for unknown indication
     Route: 042
  15. PHTHALYLSULFATHIAZOLE [Suspect]
     Active Substance: PHTHALYLSULFATHIAZOLE
     Indication: Product used for unknown indication
     Route: 065
  16. PREDNISONE [Suspect]
     Active Substance: PREDNISONE
     Indication: Product used for unknown indication
     Route: 065
  17. PSEUDOEPHEDRINE HYDROCHLORIDE [Suspect]
     Active Substance: PSEUDOEPHEDRINE HYDROCHLORIDE
     Indication: Product used for unknown indication
     Route: 065
  18. CETIRIZINE HYDROCHLORIDE [Suspect]
     Active Substance: CETIRIZINE HYDROCHLORIDE
     Indication: Product used for unknown indication
     Route: 065
  19. REMICADE [Suspect]
     Active Substance: INFLIXIMAB
     Indication: Rheumatoid arthritis
     Dosage: POWDER FOR SOLUTION INTRAVENOUS
     Route: 042
  20. SIMPONI [Suspect]
     Active Substance: GOLIMUMAB
     Indication: Rheumatoid arthritis
     Dosage: SOLUTION SUBCUTANEOUS
     Route: 058

REACTIONS (11)
  - Abdominal discomfort [Recovered/Resolved]
  - Glossodynia [Recovered/Resolved]
  - Pemphigus [Recovered/Resolved]
  - Rheumatoid arthritis [Recovered/Resolved]
  - Contraindicated product administered [Recovered/Resolved]
  - Systemic lupus erythematosus [Recovered/Resolved]
  - Alopecia [Recovered/Resolved]
  - Pain [Recovered/Resolved]
  - Drug ineffective [Recovered/Resolved]
  - Maternal exposure during pregnancy [Recovered/Resolved]
  - Product use issue [Recovered/Resolved]
